FAERS Safety Report 8581946-X (Version None)
Quarter: 2012Q3

REPORT INFORMATION
  Report Type: 
  Country: None (occurrence: None)
  Receive Date: 20120727
  Receipt Date: 20120719
  Transmission Date: 20120928
  Serious: Yes (Hospitalization)
  Sender: FDA-Public Use
  Company Number: 2012HGS-003818

PATIENT
  Age: 44 Year
  Sex: Female
  Weight: 69.8539 kg

DRUGS (5)
  1. KEPPRA [Concomitant]
  2. PREDNISONE [Concomitant]
  3. PLAQUINIL (HYDROXYCHLOROQUINE PHOSPHATE) (HYDROXYCHLOROQUINE PHOSPHATE [Concomitant]
  4. BENLYSTA [Suspect]
     Indication: SYSTEMIC LUPUS ERYTHEMATOSUS
     Dosage: 1 IN 28 D, INTRAVENOUS DRIP
     Route: 041
     Dates: start: 20120530
  5. CLOBETASOL (CLOBETASOL) (CLOBETASOL) [Concomitant]

REACTIONS (6)
  - URINARY TRACT INFECTION [None]
  - BLOOD CHOLESTEROL INCREASED [None]
  - MUSCULAR WEAKNESS [None]
  - PAIN IN EXTREMITY [None]
  - SKIN MASS [None]
  - BLOOD POTASSIUM DECREASED [None]
